FAERS Safety Report 10265853 (Version 1)
Quarter: 2014Q2

REPORT INFORMATION
  Report Type: Spontaneous
  Country: US (occurrence: US)
  Receive Date: 20140627
  Receipt Date: 20140627
  Transmission Date: 20141212
  Serious: No
  Sender: FDA-Public Use
  Company Number: US-B.I. PHARMACEUTICALS,INC./RIDGEFIELD-2014-BI-28104BP

PATIENT
  Age: 61 Year
  Sex: Female
  Weight: 73 kg

DRUGS (5)
  1. MIRAPEX [Suspect]
     Indication: PARKINSON^S DISEASE
     Dosage: 0.75 MG
     Route: 048
     Dates: start: 201403
  2. CARBIDOPA-LEVODOPA [Concomitant]
     Indication: PARKINSON^S DISEASE
     Dosage: STRENGTH: 25MG-100MG; DAILY DOSE: 125MG-500MG
     Route: 048
  3. VITAMINS [Concomitant]
     Indication: SUPPLEMENTATION THERAPY
     Route: 048
  4. IRON [Concomitant]
     Indication: SUPPLEMENTATION THERAPY
     Route: 048
  5. DOCUSATE [Concomitant]
     Indication: CONSTIPATION
     Dosage: 200 MG
     Route: 048

REACTIONS (2)
  - Myalgia [Recovered/Resolved]
  - Somnolence [Not Recovered/Not Resolved]
